FAERS Safety Report 11795980 (Version 1)
Quarter: 2015Q4

REPORT INFORMATION
  Report Type: Spontaneous
  Country: US (occurrence: US)
  Receive Date: 20151203
  Receipt Date: 20151203
  Transmission Date: 20160305
  Serious: No
  Sender: FDA-Public Use
  Company Number: US-ASTRAZENECA-2015SF13016

PATIENT
  Sex: Female

DRUGS (11)
  1. DOXYCYCLINE. [Concomitant]
     Active Substance: DOXYCYCLINE
  2. PROAIR HFA [Concomitant]
     Active Substance: ALBUTEROL SULFATE
  3. ALBUTEROL. [Concomitant]
     Active Substance: ALBUTEROL
  4. ONDANSETRON [Concomitant]
     Active Substance: ONDANSETRON
  5. FLONASE [Concomitant]
     Active Substance: FLUTICASONE PROPIONATE
  6. SYMBICORT [Suspect]
     Active Substance: BUDESONIDE\FORMOTEROL FUMARATE DIHYDRATE
     Dosage: TWICE DAILY
     Route: 055
  7. IPRATROPIUM [Concomitant]
     Active Substance: IPRATROPIUM
  8. PANTOPRAZOLE [Concomitant]
     Active Substance: PANTOPRAZOLE SODIUM
  9. PHAZYME [Concomitant]
     Active Substance: DIMETHICONE 410
  10. ALPRAZOLAM. [Concomitant]
     Active Substance: ALPRAZOLAM
  11. PREDNISONE. [Concomitant]
     Active Substance: PREDNISONE

REACTIONS (3)
  - Dyskinesia [Unknown]
  - Nervousness [Unknown]
  - Tremor [Unknown]
